FAERS Safety Report 10342990 (Version 3)
Quarter: 2014Q3

REPORT INFORMATION
  Report Type: Spontaneous
  Country: JP (occurrence: JP)
  Receive Date: 20140725
  Receipt Date: 20140828
  Transmission Date: 20150326
  Serious: Yes (Other)
  Sender: FDA-Public Use
  Company Number: PHHY2014JP091205

PATIENT
  Age: 70 Year
  Sex: Female

DRUGS (7)
  1. TOREMIFENE [Concomitant]
     Active Substance: TOREMIFENE
     Dosage: UNK UKN, UNK
     Route: 048
  2. VINORELBINE DITARTRATE [Concomitant]
     Active Substance: VINORELBINE TARTRATE
     Dosage: UNK UKN, UNK
  3. MEDROXYPROGESTERONE ACETATE. [Concomitant]
     Active Substance: MEDROXYPROGESTERONE ACETATE
     Dosage: UNK UKN, UNK
     Route: 048
  4. CAPECITABINE [Concomitant]
     Active Substance: CAPECITABINE
     Dosage: UNK UKN, UNK
     Route: 048
  5. GEMCITABINE HYDROCHLORIDE. [Concomitant]
     Active Substance: GEMCITABINE HYDROCHLORIDE
     Dosage: UNK UKN, UNK
  6. ZOMETA [Suspect]
     Active Substance: ZOLEDRONIC ACID
     Indication: METASTASES TO BONE
     Dosage: 4 MG, (PER ADMINISTRATION)
     Route: 041
     Dates: start: 200902, end: 20140203
  7. LETROZOLE. [Concomitant]
     Active Substance: LETROZOLE
     Dosage: UNK UKN, UNK
     Route: 048

REACTIONS (13)
  - Swelling [Unknown]
  - Osteomyelitis [Unknown]
  - Bone lesion [Unknown]
  - Dental caries [Unknown]
  - Osteonecrosis of jaw [Not Recovered/Not Resolved]
  - Pain [Unknown]
  - Tenderness [Unknown]
  - Soft tissue infection [Unknown]
  - Periodontitis [Unknown]
  - Toothache [Unknown]
  - Purulent discharge [Unknown]
  - Exposed bone in jaw [Unknown]
  - Erythema [Unknown]

NARRATIVE: CASE EVENT DATE: 20140203
